FAERS Safety Report 25596566 (Version 1)
Quarter: 2025Q3

REPORT INFORMATION
  Report Type: Spontaneous
  Country: CN (occurrence: CN)
  Receive Date: 20250723
  Receipt Date: 20250723
  Transmission Date: 20251021
  Serious: Yes (Hospitalization, Other)
  Sender: PFIZER
  Company Number: CN-PFIZER INC-PV202500086298

PATIENT
  Age: 66 Year
  Sex: Male
  Weight: 53.2 kg

DRUGS (2)
  1. CYTARABINE [Suspect]
     Active Substance: CYTARABINE
     Indication: Acute myeloid leukaemia
     Dosage: 15 MG, 2X/DAY (Q12H)
     Route: 058
     Dates: start: 20250623, end: 20250701
  2. DECITABINE [Concomitant]
     Active Substance: DECITABINE
     Indication: Acute myeloid leukaemia
     Dosage: 20 MG, 1X/DAY
     Route: 041
     Dates: start: 20250620

REACTIONS (4)
  - Myelosuppression [Recovering/Resolving]
  - Neutropenic infection [Unknown]
  - Hyperpyrexia [Unknown]
  - Off label use [Unknown]

NARRATIVE: CASE EVENT DATE: 20250623
